FAERS Safety Report 4365943-6 (Version None)
Quarter: 2004Q2

REPORT INFORMATION
  Report Type: 
  Country: None (occurrence: None)
  Receive Date: 20040520
  Receipt Date: 20040505
  Transmission Date: 20050107
  Serious: Yes (Hospitalization)
  Sender: FDA-Public Use
  Company Number: S04-FRA-02079-01

PATIENT
  Age: 90 Year
  Sex: Female

DRUGS (13)
  1. CITALOPRAM HYDROBROMIDE [Suspect]
     Dosage: 20 MG QD PO
     Dates: start: 20031010
  2. ASPIRIN [Suspect]
     Dosage: 75 MG QD PO
     Dates: start: 20031010
  3. LEVOTHYROX (LEVOTHYROXINE SODIUM) [Concomitant]
  4. AMLODIPINE BESYLATE [Concomitant]
  5. STILNOX (ZOLPIDEM) [Concomitant]
  6. LANSOYL (PARAFFIN, LIQUID) [Concomitant]
  7. ESOMEPRAZOLE [Concomitant]
  8. LASIX [Concomitant]
  9. TRANSIPEG (MACROGOL) [Concomitant]
  10. TRAMADOL HCL [Concomitant]
  11. OXAZEPAM [Concomitant]
  12. CLASTOBAN (CLODRONATE DISODIUM) [Concomitant]
  13. FOLIC ACID [Concomitant]

REACTIONS (10)
  - ABDOMINAL PAIN [None]
  - ANAEMIA [None]
  - BLOOD CREATINE INCREASED [None]
  - CARDIOMEGALY [None]
  - DISORIENTATION [None]
  - DRUG INTERACTION [None]
  - GASTROINTESTINAL HAEMORRHAGE [None]
  - LUNG CREPITATION [None]
  - PROTHROMBIN TIME PROLONGED [None]
  - TENSION [None]
